FAERS Safety Report 9421814 (Version 1)
Quarter: 2013Q3

REPORT INFORMATION
  Report Type: Spontaneous
  Country: AU (occurrence: AU)
  Receive Date: 20130726
  Receipt Date: 20130726
  Transmission Date: 20140515
  Serious: Yes (Other)
  Sender: FDA-Public Use
  Company Number: AU-BRISTOL-MYERS SQUIBB COMPANY-19130897

PATIENT
  Age: 62 Year
  Sex: Male

DRUGS (1)
  1. HYDREA [Suspect]
     Indication: POLYCYTHAEMIA
     Dosage: 1DF:1TAB
     Route: 048
     Dates: start: 201304

REACTIONS (3)
  - Sinus operation [Unknown]
  - Pyrexia [Unknown]
  - Off label use [Unknown]
